FAERS Safety Report 9889847 (Version 1)
Quarter: 2014Q1

REPORT INFORMATION
  Report Type: Spontaneous
  Country: US (occurrence: US)
  Receive Date: 20140212
  Receipt Date: 20140212
  Transmission Date: 20141002
  Serious: Yes (Hospitalization)
  Sender: FDA-Public Use
  Company Number: US-BIOGENIDEC-2014BI012772

PATIENT
  Age: 38 Year
  Sex: Female

DRUGS (2)
  1. TYSABRI [Suspect]
     Indication: MULTIPLE SCLEROSIS
     Route: 042
     Dates: start: 20081024, end: 20111012
  2. TYSABRI [Suspect]
     Indication: MULTIPLE SCLEROSIS
     Route: 042
     Dates: start: 20130611

REACTIONS (7)
  - Optic neuritis [Recovered/Resolved]
  - Blindness [Recovered/Resolved]
  - Gastric disorder [Unknown]
  - Retching [Not Recovered/Not Resolved]
  - Loss of consciousness [Recovered/Resolved]
  - Neuralgia [Not Recovered/Not Resolved]
  - Vision blurred [Not Recovered/Not Resolved]
